FAERS Safety Report 5787418-X (Version None)
Quarter: 2008Q2

REPORT INFORMATION
  Report Type: 
  Country: None (occurrence: None)
  Receive Date: 20080625
  Receipt Date: 20080623
  Transmission Date: 20081010
  Serious: Yes (Death)
  Sender: FDA-Public Use
  Company Number: US-ASTRAZENECA-2008UW06725

PATIENT
  Age: 42 Year
  Sex: Male

DRUGS (9)
  1. SEROQUEL [Suspect]
     Route: 048
  2. HALDOL [Concomitant]
     Indication: MENTAL DISORDER
  3. HALDOL [Concomitant]
     Dosage: UP TO 5 MG X4 QHS
  4. PRAZOSIN HCL [Concomitant]
     Indication: POST-TRAUMATIC STRESS DISORDER
  5. VALIUM [Concomitant]
  6. VALIUM [Concomitant]
     Dosage: UP TO 10 MG QID PRN
  7. AMBIEN [Concomitant]
  8. OXYCODONE HCL [Concomitant]
  9. TRILAFON [Concomitant]

REACTIONS (1)
  - DEATH [None]
